FAERS Safety Report 25838387 (Version 3)
Quarter: 2025Q4

REPORT INFORMATION
  Report Type: Spontaneous
  Country: EU (occurrence: EU)
  Receive Date: 20250923
  Receipt Date: 20251221
  Transmission Date: 20260118
  Serious: Yes (Death, Hospitalization, Other)
  Sender: BIOGEN
  Company Number: EU-BIOGEN-2025BI01324735

PATIENT
  Age: 31 Year
  Sex: Male

DRUGS (2)
  1. SKYCLARYS [Suspect]
     Active Substance: OMAVELOXOLONE
     Indication: Friedreich^s ataxia
     Dates: start: 202406, end: 20250709
  2. SKYCLARYS [Suspect]
     Active Substance: OMAVELOXOLONE
     Dates: start: 202407, end: 20250709

REACTIONS (4)
  - Cardiac failure [Fatal]
  - Ejection fraction decreased [Fatal]
  - Cardiac valve disease [Fatal]
  - Systemic lupus erythematosus [Unknown]

NARRATIVE: CASE EVENT DATE: 20250701
